FAERS Safety Report 10931613 (Version 4)
Quarter: 2015Q3

REPORT INFORMATION
  Report Type: Spontaneous
  Country: US (occurrence: US)
  Receive Date: 20150319
  Receipt Date: 20150717
  Transmission Date: 20151125
  Serious: No
  Sender: FDA-Public Use
  Company Number: US-GILEAD-2015-0143041

PATIENT
  Age: 65 Year
  Sex: Female
  Weight: 52.16 kg

DRUGS (2)
  1. RIBASPHERE RIBAPAK [Suspect]
     Active Substance: RIBAVIRIN
     Indication: HEPATITIS C
     Dosage: 1000 MG, QD
     Route: 048
     Dates: start: 20150205, end: 20150430
  2. SOVALDI [Suspect]
     Active Substance: SOFOSBUVIR
     Indication: HEPATITIS C
     Dosage: 400 MG, QD
     Route: 048
     Dates: start: 20150205, end: 20150430

REACTIONS (12)
  - Pruritus [Unknown]
  - Migraine [Unknown]
  - Depression [Unknown]
  - Confusional state [Unknown]
  - Nausea [Unknown]
  - Anxiety [Unknown]
  - Constipation [Unknown]
  - Headache [Unknown]
  - Myalgia [Unknown]
  - Memory impairment [Unknown]
  - Tinnitus [Unknown]
  - Fatigue [Unknown]
